FAERS Safety Report 10962772 (Version 1)
Quarter: 2015Q1

REPORT INFORMATION
  Report Type: Spontaneous
  Country: US (occurrence: US)
  Receive Date: 20150327
  Receipt Date: 20150327
  Transmission Date: 20150721
  Serious: No
  Sender: FDA-Public Use
  Company Number: US-GLAXOSMITHKLINE-US2015013450

PATIENT
  Age: 47 Year
  Sex: Female

DRUGS (1)
  1. ALLI [Suspect]
     Active Substance: ORLISTAT
     Indication: WEIGHT LOSS DIET
     Route: 048

REACTIONS (4)
  - Treatment noncompliance [Recovered/Resolved]
  - Therapeutic response unexpected [Recovered/Resolved]
  - Steatorrhoea [Recovered/Resolved]
  - Discomfort [Recovered/Resolved]
